FAERS Safety Report 9104334 (Version 1)
Quarter: 2013Q1

REPORT INFORMATION
  Report Type: Report from Study
  Country: US (occurrence: US)
  Receive Date: 20130220
  Receipt Date: 20130220
  Transmission Date: 20140127
  Serious: Yes (Hospitalization, Other)
  Sender: FDA-Public Use
  Company Number: US-ABBOTT-13P-163-1049453-00

PATIENT
  Age: 24 Year
  Sex: Male

DRUGS (3)
  1. HUMIRA [Suspect]
     Indication: CROHN^S DISEASE
     Dates: start: 201210
  2. DICYCLOMINE [Concomitant]
     Indication: CROHN^S DISEASE
  3. BENTYL [Concomitant]
     Indication: CROHN^S DISEASE

REACTIONS (2)
  - Abdominal adhesions [Recovering/Resolving]
  - Herpes zoster [Recovering/Resolving]
